FAERS Safety Report 9450072 (Version 4)
Quarter: 2014Q2

REPORT INFORMATION
  Report Type: Spontaneous
  Country: US (occurrence: US)
  Receive Date: 20130809
  Receipt Date: 20140523
  Transmission Date: 20141212
  Serious: Yes (Hospitalization)
  Sender: FDA-Public Use
  Company Number: US-BAYER-2013-096177

PATIENT
  Age: 32 Year
  Sex: Female
  Weight: 63.49 kg

DRUGS (9)
  1. MIRENA [Suspect]
     Indication: CONTRACEPTION
     Dosage: 20 MCG/24HR, CONT
     Route: 015
     Dates: start: 20121024, end: 20130603
  2. PREDNISONE [Concomitant]
     Indication: SYSTEMIC LUPUS ERYTHEMATOSUS
     Dosage: 5 MG, DAILY
     Dates: start: 2005
  3. PREDNISONE [Concomitant]
     Indication: SYSTEMIC LUPUS ERYTHEMATOSUS
     Dosage: 5 MG, UNK
     Dates: start: 20130417
  4. PLAQUENIL [Concomitant]
     Indication: SYSTEMIC LUPUS ERYTHEMATOSUS
     Dosage: 200 MG, BID
     Dates: start: 2005
  5. NEURONTIN [Concomitant]
     Indication: FIBROMYALGIA
     Dosage: 600 MG, UNK
     Dates: start: 2005
  6. PAXIL [Concomitant]
     Indication: DEPRESSION
     Dosage: 10 MG, DAILY
     Dates: start: 2005
  7. DIFLUCAN [Concomitant]
     Dosage: 150 MG, 1 TABLET, REPEAT IN 3 DAYS
  8. BUPROPION HYDROCHLORIDE [Concomitant]
  9. GABAPENTIN [Concomitant]

REACTIONS (12)
  - Uterine perforation [None]
  - Injury [None]
  - Pain [None]
  - Emotional distress [None]
  - Abdominal pain lower [None]
  - Dyspareunia [None]
  - Menorrhagia [None]
  - General physical condition abnormal [None]
  - Anhedonia [None]
  - Device issue [None]
  - Depression [None]
  - Anxiety [None]
